FAERS Safety Report 14836092 (Version 2)
Quarter: 2018Q2

REPORT INFORMATION
  Report Type: Spontaneous
  Country: US (occurrence: US)
  Receive Date: 20180502
  Receipt Date: 20180524
  Transmission Date: 20180711
  Serious: No
  Sender: FDA-Public Use
  Company Number: US-PFIZER INC-2018172477

PATIENT
  Age: 41 Year
  Sex: Female

DRUGS (3)
  1. METHOTREXATE SODIUM. [Suspect]
     Active Substance: METHOTREXATE SODIUM
     Dosage: 0.8 ML, CYCLIC (EVERY OTHER WEEK)
     Route: 058
  2. METHOTREXATE SODIUM. [Suspect]
     Active Substance: METHOTREXATE SODIUM
     Indication: RHEUMATOID ARTHRITIS
     Dosage: 0.8 ML, WEEKLY
     Route: 058
  3. METHOTREXATE SODIUM. [Suspect]
     Active Substance: METHOTREXATE SODIUM
     Dosage: 15 MG, WEEKLY
     Route: 058
     Dates: start: 201605, end: 201712

REACTIONS (4)
  - Drug ineffective [Unknown]
  - Influenza [Unknown]
  - Product use issue [Unknown]
  - Gastritis [Unknown]

NARRATIVE: CASE EVENT DATE: 201712
